FAERS Safety Report 7732438-9 (Version None)
Quarter: 2011Q3

REPORT INFORMATION
  Report Type: 
  Country: None (occurrence: None)
  Receive Date: 20110906
  Receipt Date: 20110826
  Transmission Date: 20111222
  Serious: Yes (Hospitalization, Other)
  Sender: FDA-Public Use
  Company Number: US-ASTRAZENECA-2010SE31478

PATIENT
  Age: 68 Year
  Sex: Male

DRUGS (4)
  1. LANTUS [Concomitant]
  2. PLAVIX [Concomitant]
  3. TOPROL-XL [Suspect]
     Route: 048
  4. CRESTOR [Suspect]
     Route: 048

REACTIONS (5)
  - POOR PERIPHERAL CIRCULATION [None]
  - DIABETES MELLITUS [None]
  - ROAD TRAFFIC ACCIDENT [None]
  - LIMB INJURY [None]
  - LOSS OF CONSCIOUSNESS [None]
